FAERS Safety Report 23866092 (Version 1)
Quarter: 2024Q2

REPORT INFORMATION
  Report Type: Spontaneous
  Country: TW (occurrence: TW)
  Receive Date: 20240517
  Receipt Date: 20240517
  Transmission Date: 20240716
  Serious: Yes (Other)
  Sender: FDA-Public Use
  Company Number: TW-SUN PHARMACEUTICAL INDUSTRIES LTD-2024R1-446416

PATIENT
  Age: 67 Year
  Sex: Female
  Weight: 57 kg

DRUGS (6)
  1. DOXYCYCLINE [Suspect]
     Active Substance: DOXYCYCLINE
     Indication: Rosacea
     Dosage: UNK
     Route: 065
  2. PREDNISOLONE [Suspect]
     Active Substance: PREDNISOLONE
     Indication: Rosacea
     Dosage: UNK
     Route: 065
  3. PROPRANOLOL [Suspect]
     Active Substance: PROPRANOLOL HYDROCHLORIDE
     Indication: Rosacea
     Dosage: UNK
     Route: 065
  4. FLUNARIZINE [Suspect]
     Active Substance: FLUNARIZINE
     Indication: Rosacea
     Dosage: UNK
     Route: 065
  5. METRONIDAZOLE [Suspect]
     Active Substance: METRONIDAZOLE
     Indication: Rosacea
     Dosage: UNK
     Route: 065
  6. SECUKINUMAB [Suspect]
     Active Substance: SECUKINUMAB
     Indication: Rosacea
     Dosage: UNK
     Route: 065

REACTIONS (1)
  - Treatment failure [Unknown]
